FAERS Safety Report 23764493 (Version 1)
Quarter: 2024Q2

REPORT INFORMATION
  Report Type: Spontaneous
  Country: US (occurrence: US)
  Receive Date: 20240420
  Receipt Date: 20240420
  Transmission Date: 20240717
  Serious: No
  Sender: FDA-Public Use
  Company Number: US-HALEON-2167155

PATIENT
  Age: 74 Year
  Sex: Female

DRUGS (1)
  1. GAVISCON REGULAR STRENGTH (ALUMINUM HYDROXIDE\MAGNESIUM CARBONATE) [Suspect]
     Active Substance: ALUMINUM HYDROXIDE\MAGNESIUM CARBONATE
     Indication: Product used for unknown indication
     Dosage: EXPDATE:202509
     Dates: start: 20240404, end: 20240404

REACTIONS (1)
  - Throat irritation [Recovered/Resolved]

NARRATIVE: CASE EVENT DATE: 20240404
